FAERS Safety Report 5870659-0 (Version None)
Quarter: 2008Q3

REPORT INFORMATION
  Report Type: 
  Country: None (occurrence: None)
  Receive Date: 20080904
  Receipt Date: 20080828
  Transmission Date: 20090109
  Serious: Yes (Other)
  Sender: FDA-Public Use
  Company Number: PHEH2008US07708

PATIENT
  Sex: Female

DRUGS (3)
  1. RECLAST [Suspect]
     Indication: OSTEOPOROSIS
     Dosage: ^1/3^ OF INFUSION
     Dates: start: 20080827, end: 20080827
  2. TENORMIN [Concomitant]
  3. ZOCOR [Concomitant]

REACTIONS (6)
  - CHEST PAIN [None]
  - COLD SWEAT [None]
  - FLUID REPLACEMENT [None]
  - HEART RATE IRREGULAR [None]
  - HYPERHIDROSIS [None]
  - HYPOTENSION [None]
